FAERS Safety Report 5152142-3 (Version None)
Quarter: 2006Q4

REPORT INFORMATION
  Report Type: 
  Country: None (occurrence: None)
  Receive Date: 20061109
  Receipt Date: 20061030
  Transmission Date: 20070319
  Serious: Yes (Other)
  Sender: FDA-Public Use
  Company Number: 2006133330

PATIENT
  Sex: Male
  Weight: 113.3993 kg

DRUGS (10)
  1. LIPITOR [Suspect]
     Dosage: 160 MG (80 MG, 2 IN 1 D)
     Dates: start: 20050101, end: 20060421
  2. GLIPIZIDE [Suspect]
     Indication: DIABETES MELLITUS NON-INSULIN-DEPENDENT
     Dosage: 5 MG (2.5 MG, 2 IN 1 D)
     Dates: start: 20050101
  3. METOPROLOL TARTRATE [Concomitant]
  4. LISINOPRIL [Concomitant]
  5. SPIRONOLACTONE [Concomitant]
  6. FUROSEMIDE [Concomitant]
  7. ASPIRIN [Concomitant]
  8. NICOTINIC ACID [Concomitant]
  9. OMEGA-3 MARINE TRIGLYCERIDES (OMEGA-3 MARINE TRIGLYCERIDES) [Concomitant]
  10. LANSOPRAZOLE [Concomitant]

REACTIONS (7)
  - ABASIA [None]
  - DIABETIC NEUROPATHY [None]
  - EYE HAEMORRHAGE [None]
  - PHOTOPHOBIA [None]
  - RHABDOMYOLYSIS [None]
  - TREMOR [None]
  - VISION BLURRED [None]
